FAERS Safety Report 7574642-9 (Version None)
Quarter: 2011Q2

REPORT INFORMATION
  Report Type: 
  Country: None (occurrence: None)
  Receive Date: 20110627
  Receipt Date: 20110217
  Transmission Date: 20111010
  Serious: No
  Sender: FDA-Public Use
  Company Number: US-BAYER-2011-049153

PATIENT
  Age: 73 Year
  Sex: Female
  Weight: 90.703 kg

DRUGS (2)
  1. ENALAPRIL MALEATE [Concomitant]
     Dosage: 1 DF, BID
     Route: 048
  2. ALEVE (CAPLET) [Suspect]
     Indication: ANALGESIC THERAPY
     Dosage: 2 DF, BID, BOTTLE COUNT 100S
     Route: 048
     Dates: start: 20110216, end: 20110216

REACTIONS (1)
  - NO ADVERSE EVENT [None]
